FAERS Safety Report 9459054 (Version 1)
Quarter: 2013Q3

REPORT INFORMATION
  Report Type: Spontaneous
  Country: US (occurrence: US)
  Receive Date: 20130814
  Receipt Date: 20130814
  Transmission Date: 20140515
  Serious: No
  Sender: FDA-Public Use
  Company Number: US-COVIDIEN/TYCO HEALTHCARE/MALLINCKRODT-T201301661

PATIENT
  Age: 40 Year
  Sex: Female

DRUGS (3)
  1. OPTIMARK [Suspect]
     Indication: ARTHROGRAM
     Dosage: 0.2 ML
     Route: 014
  2. SODIUM CHLORIDE [Suspect]
     Indication: ARTHROGRAM
     Dosage: 7 ML
     Route: 014
  3. IODINE [Suspect]
     Indication: ARTHROGRAM
     Dosage: 5 ML
     Route: 014

REACTIONS (2)
  - Drug ineffective [Unknown]
  - Off label use [Unknown]
